FAERS Safety Report 8167184-3 (Version None)
Quarter: 2012Q1

REPORT INFORMATION
  Report Type: 
  Country: None (occurrence: None)
  Receive Date: 20120227
  Receipt Date: 20120213
  Transmission Date: 20120608
  Serious: Yes (Other)
  Sender: FDA-Public Use
  Company Number: US-ELI_LILLY_AND_COMPANY-US201111000245

PATIENT
  Sex: Male
  Weight: 75.737 kg

DRUGS (4)
  1. CYMBALTA [Suspect]
     Indication: ANXIETY
     Dosage: 30 MG, QD
     Dates: start: 20070101
  2. CYMBALTA [Suspect]
     Dosage: 60 MG, QD
     Dates: start: 20070601, end: 20110622
  3. BYSTOLIC [Concomitant]
  4. ANDROGEL [Concomitant]

REACTIONS (2)
  - PANCREATIC CYST [None]
  - PANCREATITIS [None]
